FAERS Safety Report 10083861 (Version 5)
Quarter: 2014Q3

REPORT INFORMATION
  Report Type: Spontaneous
  Country: IT (occurrence: None)
  Receive Date: 20140415
  Receipt Date: 20140812
  Transmission Date: 20150326
  Serious: Yes (Hospitalization, Other)
  Sender: FDA-Public Use
  Company Number: 2011IT000389

PATIENT
  Age: 69 Year
  Sex: Female
  Weight: 40 kg

DRUGS (7)
  1. PONATINIB [Suspect]
     Active Substance: PONATINIB
     Indication: ACUTE LYMPHOCYTIC LEUKAEMIA
     Route: 048
     Dates: start: 20110629, end: 20110919
  2. DELTACORTENE (PREDNISONE) [Concomitant]
     Active Substance: PREDNISONE
  3. TRIMETHOPRIM SULFAMETHOXAZOLE (SULFAMETHOXAZOLE, TRIMETHOPRIM) [Concomitant]
  4. TRAMADOLE [Concomitant]
  5. PROPRANOLOL HYDROCHLORIDE (PROPRANOLOL HYDROCHLORIDE) [Concomitant]
     Active Substance: PROPRANOLOL HYDROCHLORIDE
  6. NYSTATINE [Concomitant]
  7. PANTOPRAZOLE (PANTOPRAZOLE) [Concomitant]
     Active Substance: PANTOPRAZOLE SODIUM

REACTIONS (36)
  - Cardiomegaly [None]
  - Bone fissure [None]
  - Activated partial thromboplastin time shortened [None]
  - Atelectasis [None]
  - Pulmonary mass [None]
  - Blood sodium decreased [None]
  - Haematocrit decreased [None]
  - Pleural effusion [None]
  - Aortic arteriosclerosis [None]
  - Amylase increased [None]
  - White blood cell count decreased [None]
  - Dermatitis exfoliative [None]
  - Monocyte percentage decreased [None]
  - Malignant neoplasm progression [None]
  - Blood glucose increased [None]
  - Blood fibrinogen decreased [None]
  - Blood potassium increased [None]
  - Lymphocyte count decreased [None]
  - Cardiac failure congestive [None]
  - Haematoma infection [None]
  - Pericardial effusion [None]
  - Blood urea increased [None]
  - Fistula [None]
  - Developmental hip dysplasia [None]
  - Tonsillar hypertrophy [None]
  - Lymphadenopathy [None]
  - Varicose vein [None]
  - Thyroid neoplasm [None]
  - Pulmonary fibrosis [None]
  - Red blood cell count decreased [None]
  - Deep vein thrombosis [None]
  - Abscess [None]
  - Acute lymphocytic leukaemia [None]
  - Osteoarthritis [None]
  - Intestinal dilatation [None]
  - Red cell distribution width increased [None]

NARRATIVE: CASE EVENT DATE: 20110901
